FAERS Safety Report 4444445-2 (Version None)
Quarter: 2004Q3

REPORT INFORMATION
  Report Type: 
  Country: None (occurrence: None)
  Receive Date: 20040902
  Receipt Date: 20040817
  Transmission Date: 20050211
  Serious: Yes (Hospitalization)
  Sender: FDA-Public Use
  Company Number: 182354

PATIENT
  Age: 54 Year
  Sex: Female
  Weight: 65.7716 kg

DRUGS (8)
  1. AVONEX [Suspect]
     Indication: MULTIPLE SCLEROSIS
     Dosage: 30 MCG QW IM
     Route: 030
     Dates: start: 20020901
  2. ACCUPRIL [Concomitant]
  3. MOBIC [Concomitant]
  4. PREMARIN [Concomitant]
  5. ZOLOFT [Concomitant]
  6. PROTONIX [Concomitant]
  7. XANAX [Concomitant]
  8. DARVOCET-N 100 [Concomitant]

REACTIONS (10)
  - ATRIAL FIBRILLATION [None]
  - CARDIAC DISORDER [None]
  - CARDIAC FAILURE CONGESTIVE [None]
  - COLONIC POLYP [None]
  - CONDITION AGGRAVATED [None]
  - HAEMORRHOIDS [None]
  - HYPERTENSION [None]
  - LOWER GASTROINTESTINAL HAEMORRHAGE [None]
  - ROAD TRAFFIC ACCIDENT [None]
  - WHIPLASH INJURY [None]
